FAERS Safety Report 13629014 (Version 1)
Quarter: 2017Q2

REPORT INFORMATION
  Report Type: Spontaneous
  Country: US (occurrence: US)
  Receive Date: 20170531
  Receipt Date: 20170531
  Transmission Date: 20170830
  Serious: No
  Sender: FDA-Public Use
  Company Number: US-ASTELLAS-1071211

PATIENT
  Sex: Female

DRUGS (1)
  1. TARCEVA [Suspect]
     Active Substance: ERLOTINIB HYDROCHLORIDE
     Indication: PRODUCT USED FOR UNKNOWN INDICATION
     Route: 065

REACTIONS (9)
  - Heart rate increased [Unknown]
  - Nasal pruritus [Unknown]
  - Memory impairment [Unknown]
  - Lip pain [Unknown]
  - Decreased appetite [Unknown]
  - Hair growth abnormal [Unknown]
  - Hair disorder [Unknown]
  - Diarrhoea [Unknown]
  - Gingival pain [Unknown]
